FAERS Safety Report 7999123-X (Version None)
Quarter: 2011Q4

REPORT INFORMATION
  Report Type: 
  Country: None (occurrence: None)
  Receive Date: 20111221
  Receipt Date: 20111212
  Transmission Date: 20120403
  Serious: Yes (Other)
  Sender: FDA-Public Use
  Company Number: US-CELGENEUS-163-21880-11121816

PATIENT
  Sex: Female

DRUGS (10)
  1. REVLIMID [Suspect]
     Indication: MULTIPLE MYELOMA
     Dosage: 10 MILLIGRAM
     Route: 048
     Dates: start: 20080609
  2. DECADRON [Concomitant]
     Route: 065
  3. DECADRON [Concomitant]
     Dosage: 4 MILLIGRAM
     Route: 065
  4. ASPIRIN [Concomitant]
     Route: 065
  5. ACTOS [Concomitant]
     Route: 065
  6. DIOVAN [Concomitant]
     Route: 065
  7. ATENOLOL [Concomitant]
     Route: 065
  8. LEXAPRO [Concomitant]
     Route: 065
  9. TEKTURNA [Concomitant]
     Route: 065
  10. NORVASC [Concomitant]
     Route: 065

REACTIONS (5)
  - SLEEP DISORDER [None]
  - SINUSITIS [None]
  - FATIGUE [None]
  - OSTEONECROSIS [None]
  - BRONCHITIS [None]
